FAERS Safety Report 16277180 (Version 1)
Quarter: 2019Q2

REPORT INFORMATION
  Report Type: Spontaneous
  Country: PR (occurrence: PR)
  Receive Date: 20190506
  Receipt Date: 20190506
  Transmission Date: 20190711
  Serious: Yes (Other)
  Sender: FDA-Public Use
  Company Number: PR-PFIZER INC-2019185785

PATIENT
  Age: 75 Year
  Sex: Female

DRUGS (2)
  1. PREMARIN [Suspect]
     Active Substance: ESTROGENS, CONJUGATED
     Indication: VULVOVAGINAL DRYNESS
     Dosage: UNK, THREE TIMES PER WEEK
     Route: 067
     Dates: start: 2017
  2. PREMARIN [Suspect]
     Active Substance: ESTROGENS, CONJUGATED
     Dosage: UNK, 2X/WEEK

REACTIONS (6)
  - Pharyngeal disorder [Unknown]
  - Head discomfort [Unknown]
  - Dysphonia [Unknown]
  - Tremor [Not Recovered/Not Resolved]
  - Condition aggravated [Unknown]
  - Intentional product misuse [Unknown]
